FAERS Safety Report 5562632-7 (Version None)
Quarter: 2007Q4

REPORT INFORMATION
  Report Type: 
  Country: None (occurrence: None)
  Receive Date: 20071211
  Receipt Date: 20071211
  Transmission Date: 20080405
  Serious: No
  Sender: FDA-Public Use
  Company Number: None

PATIENT
  Age: 54 Year
  Sex: Male
  Weight: 133.8111 kg

DRUGS (3)
  1. PRAVACHOL [Suspect]
     Indication: BLOOD CHOLESTEROL INCREASED
     Dosage: 40 MG 1 PER DAY PO
     Route: 048
     Dates: start: 19971111, end: 20041101
  2. LIPITOR [Suspect]
     Indication: BLOOD CHOLESTEROL INCREASED
     Dosage: 20 MG 1 PER DAY PO
     Route: 048
     Dates: start: 20041102, end: 20071201
  3. ZOCOR [Suspect]
     Indication: BLOOD CHOLESTEROL INCREASED
     Dosage: 20 MG 1 PER DAY PO
     Route: 048
     Dates: start: 20041102, end: 20071201

REACTIONS (7)
  - AMNESIA [None]
  - CORONARY ARTERY DISEASE [None]
  - FATIGUE [None]
  - MENTAL STATUS CHANGES [None]
  - MYALGIA [None]
  - MYOCARDIAL INFARCTION [None]
  - SEXUAL DYSFUNCTION [None]
